FAERS Safety Report 9287025 (Version 2)
Quarter: 2013Q4

REPORT INFORMATION
  Report Type: Spontaneous
  Country: US (occurrence: US)
  Receive Date: 20130513
  Receipt Date: 20131030
  Transmission Date: 20140711
  Serious: Yes (Hospitalization)
  Sender: FDA-Public Use
  Company Number: US-B.I. PHARMACEUTICALS,INC./RIDGEFIELD-2013-BI-13174BP

PATIENT
  Sex: Male
  Weight: 88.45 kg

DRUGS (11)
  1. PRADAXA [Suspect]
     Indication: ATRIAL FIBRILLATION
     Dosage: 300 MG
     Dates: start: 201206, end: 20130312
  2. ATIVAN [Concomitant]
     Indication: INSOMNIA
  3. FLOMAX [Concomitant]
  4. FLONASE [Concomitant]
  5. FLUDROCORTISONE [Concomitant]
  6. LABETOLOL [Concomitant]
     Dosage: 200 MG
  7. LAMICTAL [Concomitant]
     Dosage: 200 MG
  8. PREVACID 24HR [Concomitant]
     Indication: GASTROOESOPHAGEAL REFLUX DISEASE
     Dosage: 60 MG
  9. SIMVASTATIN [Concomitant]
     Dosage: 20 MG
  10. VALSARTAN [Concomitant]
     Dosage: 80 MG
  11. ADVIL [Concomitant]

REACTIONS (3)
  - Gastrointestinal haemorrhage [Unknown]
  - Normochromic normocytic anaemia [Unknown]
  - Iron deficiency anaemia [Unknown]
